FAERS Safety Report 23481980 (Version 1)
Quarter: 2024Q1

REPORT INFORMATION
  Report Type: Spontaneous
  Country: US (occurrence: US)
  Receive Date: 20240205
  Receipt Date: 20240205
  Transmission Date: 20240410
  Serious: No
  Sender: FDA-Public Use
  Company Number: US-Calliditas-2024CAL00122

PATIENT
  Age: 38 Year
  Sex: Male
  Weight: 166.46 kg

DRUGS (1)
  1. TARPEYO [Suspect]
     Active Substance: BUDESONIDE
     Indication: IgA nephropathy
     Route: 048
     Dates: start: 20231223

REACTIONS (2)
  - Product dose omission issue [Recovered/Resolved]
  - Migraine [Recovered/Resolved]
